FAERS Safety Report 21084816 (Version 1)
Quarter: 2022Q3

REPORT INFORMATION
  Report Type: Spontaneous
  Country: BR (occurrence: BR)
  Receive Date: 20220714
  Receipt Date: 20220714
  Transmission Date: 20221026
  Serious: Yes (Disabling)
  Sender: FDA-Public Use
  Company Number: BR-ABBOTT-2022A-1350801

PATIENT
  Sex: Female

DRUGS (1)
  1. DEPAKENE [Suspect]
     Active Substance: VALPROIC ACID
     Indication: Affective disorder
     Route: 048
     Dates: start: 20190909

REACTIONS (5)
  - Gait disturbance [Not Recovered/Not Resolved]
  - Bedridden [Not Recovered/Not Resolved]
  - Product use in unapproved indication [Unknown]
  - Spinal disorder [Unknown]
  - Neurological symptom [Unknown]

NARRATIVE: CASE EVENT DATE: 20190909
